FAERS Safety Report 7068778-9 (Version None)
Quarter: 2010Q4

REPORT INFORMATION
  Report Type: 
  Country: None (occurrence: None)
  Receive Date: 20101023
  Receipt Date: 20101023
  Transmission Date: 20110411
  Serious: Yes (Other)
  Sender: FDA-Public Use
  Company Number: None

PATIENT
  Age: 39 Year
  Sex: Female
  Weight: 56.246 kg

DRUGS (2)
  1. NITROFURANTOIN [Suspect]
     Indication: CYSTITIS
     Dosage: 2 PILLS 2X DAILY BY MOUTH
     Route: 048
     Dates: start: 20100226, end: 20100308
  2. NITROFURANTOIN [Suspect]
     Indication: CYSTITIS
     Dosage: 2 PILLS 2X DAILY BY MOUTH
     Route: 048
     Dates: start: 20100919

REACTIONS (9)
  - ARTHRALGIA [None]
  - CYSTITIS [None]
  - DISORIENTATION [None]
  - DIZZINESS [None]
  - HEADACHE [None]
  - MIDDLE INSOMNIA [None]
  - MYALGIA [None]
  - PNEUMONIA [None]
  - TREMOR [None]
